FAERS Safety Report 10936275 (Version 1)
Quarter: 2015Q1

REPORT INFORMATION
  Report Type: Spontaneous
  Country: US (occurrence: None)
  Receive Date: 20150320
  Receipt Date: 20150320
  Transmission Date: 20150721
  Serious: Yes (Disabling)
  Sender: FDA-Public Use
  Company Number: None

PATIENT
  Age: 12 Year
  Sex: Female
  Weight: 90.72 kg

DRUGS (4)
  1. BUSPRONE [Concomitant]
  2. BIRTH CONTROL [Concomitant]
     Active Substance: UNSPECIFIED INGREDIENT
  3. FLUOXETINE [Suspect]
     Active Substance: FLUOXETINE\FLUOXETINE HYDROCHLORIDE
     Indication: DEPRESSION
     Dosage: 1
     Route: 048
     Dates: start: 20111210, end: 20130731
  4. PRISTIQ EXTENDED-RELEASE [Concomitant]
     Active Substance: DESVENLAFAXINE SUCCINATE

REACTIONS (7)
  - Anxiety [None]
  - Suicidal ideation [None]
  - Irritability [None]
  - Abnormal weight gain [None]
  - Breast enlargement [None]
  - Nightmare [None]
  - Agitation [None]

NARRATIVE: CASE EVENT DATE: 20111210
